FAERS Safety Report 4300562-9 (Version None)
Quarter: 2004Q1

REPORT INFORMATION
  Report Type: 
  Country: None (occurrence: None)
  Receive Date: 20040218
  Receipt Date: 20040129
  Transmission Date: 20041129
  Serious: Yes (Death, Congenital Anomaly)
  Sender: FDA-Public Use
  Company Number: USA031254272

PATIENT
  Age: 1 Day
  Sex: Male
  Weight: 2 kg

DRUGS (8)
  1. ZYPREXA [Suspect]
  2. ATIVAN [Concomitant]
  3. PRENATAL VITAMINS [Concomitant]
  4. NICORETTE GUM (NICOTINE RESIN) [Concomitant]
  5. ENSURE [Concomitant]
  6. COLACE (DOCUSATE SODIUM) [Concomitant]
  7. NEURONTIN [Concomitant]
  8. SEROQUEL [Concomitant]

REACTIONS (6)
  - CAESAREAN SECTION [None]
  - HYPERTELORISM OF ORBIT [None]
  - INTRA-UTERINE DEATH [None]
  - MATERNAL DRUGS AFFECTING FOETUS [None]
  - PLACENTAL INSUFFICIENCY [None]
  - UMBILICAL CORD ABNORMALITY [None]
